FAERS Safety Report 5354771-0 (Version None)
Quarter: 2007Q2

REPORT INFORMATION
  Report Type: 
  Country: None (occurrence: None)
  Receive Date: 20070611
  Receipt Date: 20070529
  Transmission Date: 20071010
  Serious: Yes (Hospitalization)
  Sender: FDA-Public Use
  Company Number: 2006-01221

PATIENT
  Age: 54 Year
  Sex: Female
  Weight: 44 kg

DRUGS (7)
  1. VELCADE [Suspect]
     Indication: T-CELL LYMPHOMA
     Dosage: 2.10 MG, INTRAVENOUS
     Route: 042
     Dates: start: 20060308, end: 20060424
  2. BLEOMYCIN [Suspect]
     Indication: T-CELL LYMPHOMA
     Dosage: 10.00MG, INTRAVENOUS
     Route: 042
     Dates: start: 20060308, end: 20060424
  3. CYCLOPHOSPHAMIDE [Suspect]
     Indication: T-CELL LYMPHOMA
     Dosage: 170.00 MG; INTRAVENOUS
     Route: 042
     Dates: start: 20060308, end: 20060424
  4. DOXORUBICIN HCL [Suspect]
     Indication: T-CELL LYMPHOMA
     Dosage: 110.00 MG; INTRAVENOUS
     Route: 042
     Dates: start: 20060308, end: 20060424
  5. ELDISINE [Suspect]
     Indication: T-CELL LYMPHOMA
     Dosage: 2.80 MG; INTRAVENOUS
     Route: 042
     Dates: start: 20060308, end: 20060424
  6. PREDNISONE TAB [Suspect]
     Indication: T-CELL LYMPHOMA
     Dosage: 120.00 MG; INTRAVENOUS
     Route: 042
     Dates: start: 20060308, end: 20060424
  7. GRANOCYTE 13-34 (LENOGRASTIM) INJECTION, 150MG/M2 [Suspect]
     Indication: T-CELL LYMPHOMA
     Dosage: 263.00 UG, SUBCUTANEOUS
     Route: 058
     Dates: start: 20060313, end: 20060429

REACTIONS (11)
  - BLOOD CREATINE INCREASED [None]
  - DIARRHOEA [None]
  - FEBRILE BONE MARROW APLASIA [None]
  - FEBRILE NEUTROPENIA [None]
  - HAEMOGLOBIN DECREASED [None]
  - HYPOCALCAEMIA [None]
  - HYPOMAGNESAEMIA [None]
  - HYPONATRAEMIA [None]
  - MUCOSAL INFLAMMATION [None]
  - OESOPHAGITIS [None]
  - PALMAR-PLANTAR ERYTHRODYSAESTHESIA SYNDROME [None]
